FAERS Safety Report 8424189-2 (Version None)
Quarter: 2012Q2

REPORT INFORMATION
  Report Type: 
  Country: None (occurrence: None)
  Receive Date: 20120608
  Receipt Date: 20120210
  Transmission Date: 20120825
  Serious: No
  Sender: FDA-Public Use
  Company Number: US-ASTRAZENECA-2012SE09830

PATIENT
  Age: 66 Year
  Sex: Female

DRUGS (4)
  1. PULMICORT FLEXHALER [Suspect]
     Route: 055
  2. TOPROL-XL [Suspect]
     Route: 048
  3. SYMBICORT [Suspect]
     Route: 055
  4. NEXIUM [Suspect]
     Route: 048

REACTIONS (1)
  - MALAISE [None]
